FAERS Safety Report 9240821 (Version 1)
Quarter: 2013Q2

REPORT INFORMATION
  Report Type: Spontaneous
  Country: US (occurrence: None)
  Receive Date: 20130418
  Receipt Date: 20130418
  Transmission Date: 20140414
  Serious: Yes (Hospitalization)
  Sender: FDA-Public Use
  Company Number: None

PATIENT
  Age: 59 Year
  Sex: Female
  Weight: 106.1 kg

DRUGS (2)
  1. LAMOTRIGINE [Suspect]
     Indication: BIPOLAR DISORDER
     Route: 048
     Dates: start: 20130221, end: 20130321
  2. AMOXICILLIN [Suspect]
     Indication: URINARY TRACT INFECTION
     Route: 048
     Dates: start: 20130322, end: 20130403

REACTIONS (8)
  - Urinary tract infection [None]
  - Fatigue [None]
  - Myalgia [None]
  - Suicidal ideation [None]
  - Tachycardia [None]
  - Drug reaction with eosinophilia and systemic symptoms [None]
  - Hepatic steatosis [None]
  - Cholelithiasis [None]
